FAERS Safety Report 11577550 (Version 1)
Quarter: 2015Q3

REPORT INFORMATION
  Report Type: Report from Study
  Country: US (occurrence: US)
  Receive Date: 20150930
  Receipt Date: 20150930
  Transmission Date: 20151125
  Serious: Yes (Other)
  Sender: FDA-Public Use
  Company Number: US-ABBVIE-15K-163-1470628-00

PATIENT
  Age: 72 Year
  Sex: Female

DRUGS (1)
  1. HUMIRA [Suspect]
     Active Substance: ADALIMUMAB
     Indication: RHEUMATOID ARTHRITIS
     Route: 065
     Dates: start: 20080601

REACTIONS (4)
  - Choking sensation [Recovered/Resolved]
  - Pulmonary hypertension [Not Recovered/Not Resolved]
  - Oropharyngeal pain [Recovered/Resolved]
  - Neck mass [Not Recovered/Not Resolved]

NARRATIVE: CASE EVENT DATE: 20150501
